FAERS Safety Report 6161881-7 (Version None)
Quarter: 2009Q2

REPORT INFORMATION
  Report Type: 
  Country: None (occurrence: None)
  Receive Date: 20090421
  Receipt Date: 20090414
  Transmission Date: 20091009
  Serious: Yes (Other)
  Sender: FDA-Public Use
  Company Number: B0558987A

PATIENT
  Sex: Female
  Weight: 82 kg

DRUGS (3)
  1. LAPATINIB [Suspect]
     Indication: BREAST CANCER
     Route: 048
     Dates: start: 20080915, end: 20090208
  2. TRASTUZUMAB [Suspect]
     Indication: BREAST CANCER
     Route: 042
     Dates: start: 20080915
  3. TROXERUTIN [Concomitant]
     Indication: EPISTAXIS
     Route: 061
     Dates: start: 20081225

REACTIONS (1)
  - ALANINE AMINOTRANSFERASE INCREASED [None]
